FAERS Safety Report 8905746 (Version 1)
Quarter: 2012Q4

REPORT INFORMATION
  Report Type: 
  Country: US (occurrence: US)
  Receive Date: 20121113
  Receipt Date: 20121113
  Transmission Date: 20130627
  Serious: Yes (Other)
  Sender: FDA-Public Use
  Company Number: US-GLAXOSMITHKLINE-A0814517A

PATIENT
  Sex: Male
  Weight: 126.4 kg

DRUGS (1)
  1. ROSIGLITAZONE MALEATE [Suspect]
     Indication: TYPE 2 DIABETES MELLITUS
     Route: 048

REACTIONS (7)
  - Myocardial infarction [Unknown]
  - Cardiac failure congestive [Unknown]
  - Blood cholesterol increased [Unknown]
  - Blood triglycerides increased [Unknown]
  - Hypertension [Unknown]
  - Thyroid disorder [Unknown]
  - Heart rate irregular [Unknown]
